FAERS Safety Report 7217824-8 (Version None)
Quarter: 2011Q1

REPORT INFORMATION
  Report Type: 
  Country: None (occurrence: None)
  Receive Date: 20101223
  Receipt Date: 20101210
  Transmission Date: 20110831
  Serious: Yes (Other)
  Sender: FDA-Public Use
  Company Number: 2010SP064462

PATIENT
  Age: 44 Year
  Sex: Female

DRUGS (9)
  1. FLOMOX (CEFCAPENE PIVOXIL HYDROCHLORIDE) [Suspect]
     Indication: SINUSITIS
     Dosage: 100 MG;ONCE; PO
     Route: 048
     Dates: start: 20101125, end: 20101125
  2. FLONASE [Suspect]
     Indication: SINUSITIS
     Dosage: 1800 IU;ONCE;PO
     Route: 048
     Dates: start: 20101125, end: 20101125
  3. MUCODYNE (CARBOCISTEINE) [Suspect]
     Indication: SINUSITIS
     Dosage: 500 MG; ONCE; PO
     Route: 048
     Dates: start: 20101125, end: 20101125
  4. DEPAS [Concomitant]
  5. TRANEXAMIC ACID [Suspect]
     Indication: SINUSITIS
     Dosage: 250 MG;ONCE; PO
     Route: 048
     Dates: start: 20101125, end: 20101125
  6. SUMATRIPTAN SUCCINATE [Concomitant]
  7. LIORESAL [Concomitant]
  8. CLARITIN [Suspect]
     Indication: SINUSITIS
     Dosage: 10 MG; ONCE; PO
     Route: 048
     Dates: start: 20101125, end: 20101125
  9. PAXIL [Concomitant]

REACTIONS (3)
  - ASTHMA [None]
  - ANAPHYLACTIC SHOCK [None]
  - VOMITING [None]
